FAERS Safety Report 19861113 (Version 1)
Quarter: 2021Q3

REPORT INFORMATION
  Report Type: Spontaneous
  Country: US (occurrence: US)
  Receive Date: 20210920
  Receipt Date: 20210920
  Transmission Date: 20211014
  Serious: Yes (Hospitalization)
  Sender: FDA-Public Use
  Company Number: None

PATIENT
  Sex: Male

DRUGS (1)
  1. TOBRAMYCIN INH SOLN 4ML AMP 300MG/4ML TEVA PHARMACEUTICALS USA [Suspect]
     Active Substance: TOBRAMYCIN
     Indication: IDIOPATHIC PULMONARY FIBROSIS
     Dosage: ?          OTHER STRENGTH:300MG/4ML;?
     Route: 048
     Dates: start: 202104

REACTIONS (1)
  - Pneumonia [None]
